FAERS Safety Report 16866075 (Version 1)
Quarter: 2019Q3

REPORT INFORMATION
  Report Type: Spontaneous
  Country: CH (occurrence: CH)
  Receive Date: 20190930
  Receipt Date: 20190930
  Transmission Date: 20191005
  Serious: Yes (Death, Life-Threatening, Hospitalization, Other)
  Sender: FDA-Public Use
  Company Number: CH-TEVA-2019-CH-1115301

PATIENT
  Age: 88 Year
  Sex: Male

DRUGS (10)
  1. CLOPIDOGREL MEPHA [Suspect]
     Active Substance: CLOPIDOGREL HYDROCHLORIDE
     Route: 048
  2. DAFALGAN [Concomitant]
     Active Substance: ACETAMINOPHEN
     Dosage: AS NECESSARY
     Route: 048
  3. PREDNISON AXAPHARM [Suspect]
     Active Substance: PREDNISONE
     Indication: GOUT
     Route: 048
     Dates: end: 20190822
  4. PANTOPRAZOL NYCOMED [Concomitant]
     Active Substance: PANTOPRAZOLE SODIUM
     Route: 048
  5. TORASEMID SANDOZ ECO [Concomitant]
     Active Substance: TORSEMIDE
     Route: 048
  6. DIAMICRON [Concomitant]
     Active Substance: GLICLAZIDE
     Route: 048
  7. NOVALGIN [Concomitant]
     Dosage: AS NECESSARY
     Route: 048
  8. TRANSIPEG [Concomitant]
     Indication: CONSTIPATION
     Dosage: AS NECESSARY
     Route: 048
  9. ACIDUM FOLICUM HAENSELER [Concomitant]
     Route: 048
  10. VITAMIN D3 STREULI [Concomitant]
     Active Substance: CHOLECALCIFEROL
     Route: 048

REACTIONS (3)
  - Upper gastrointestinal haemorrhage [Fatal]
  - Basal ganglia haemorrhage [Fatal]
  - Haematemesis [Fatal]

NARRATIVE: CASE EVENT DATE: 20190822
